FAERS Safety Report 24137717 (Version 1)
Quarter: 2024Q3

REPORT INFORMATION
  Report Type: Spontaneous
  Country: US (occurrence: US)
  Receive Date: 20240725
  Receipt Date: 20240725
  Transmission Date: 20241017
  Serious: Yes (Hospitalization)
  Sender: TEVA
  Company Number: US-TEVA-VS-3222694

PATIENT
  Age: 22 Year
  Sex: Female

DRUGS (15)
  1. FLUTICASONE [Suspect]
     Active Substance: FLUTICASONE
     Indication: Pleuroparenchymal fibroelastosis
     Route: 065
     Dates: start: 2014
  2. FLUTICASONE [Suspect]
     Active Substance: FLUTICASONE
  3. ALBUTEROL [Suspect]
     Active Substance: ALBUTEROL
     Indication: Pleuroparenchymal fibroelastosis
     Route: 065
     Dates: start: 2014
  4. ALBUTEROL [Suspect]
     Active Substance: ALBUTEROL
  5. ALBUTEROL [Suspect]
     Active Substance: ALBUTEROL
  6. ALBUTEROL [Suspect]
     Active Substance: ALBUTEROL
  7. DOXORUBICIN [Suspect]
     Active Substance: DOXORUBICIN
     Indication: Ewing^s sarcoma
     Dosage: THERAPY COMPLETED.
     Route: 065
     Dates: start: 2002, end: 2007
  8. VINCRISTINE [Suspect]
     Active Substance: VINCRISTINE
     Indication: Ewing^s sarcoma
     Dosage: THERAPY COMPLETED.
     Route: 065
     Dates: start: 2002, end: 2007
  9. PREDNISONE [Suspect]
     Active Substance: PREDNISONE
     Indication: Pleuroparenchymal fibroelastosis
     Route: 065
     Dates: start: 2014
  10. CYCLOPHOSPHAMIDE [Suspect]
     Active Substance: CYCLOPHOSPHAMIDE
     Indication: Ewing^s sarcoma
     Dosage: THERAPY COMPLETED.
     Route: 065
     Dates: start: 2002, end: 2007
  11. IFOSFAMIDE [Suspect]
     Active Substance: IFOSFAMIDE
     Indication: Ewing^s sarcoma
     Dosage: THERAPY COMPLETED.
     Route: 065
     Dates: start: 2002, end: 2007
  12. ETOPOSIDE [Suspect]
     Active Substance: ETOPOSIDE
     Indication: Ewing^s sarcoma
     Dosage: THERAPY COMPLETED.
     Route: 065
     Dates: start: 2002, end: 2007
  13. IRINOTECAN [Suspect]
     Active Substance: IRINOTECAN
     Indication: Ewing^s sarcoma
     Dosage: THERAPY COMPLETED.
     Route: 065
     Dates: start: 2002, end: 2007
  14. TIOTROPIUM [Suspect]
     Active Substance: TIOTROPIUM
     Indication: Pleuroparenchymal fibroelastosis
     Route: 065
     Dates: start: 2014
  15. TEMOZOLOMIDE [Suspect]
     Active Substance: TEMOZOLOMIDE
     Indication: Ewing^s sarcoma
     Dosage: THERAPY COMPLETED.
     Route: 065
     Dates: start: 2002, end: 2007

REACTIONS (2)
  - Pleuroparenchymal fibroelastosis [Recovering/Resolving]
  - Drug ineffective [Unknown]
